FAERS Safety Report 16619559 (Version 1)
Quarter: 2019Q3

REPORT INFORMATION
  Report Type: Spontaneous
  Country: US (occurrence: US)
  Receive Date: 20190723
  Receipt Date: 20190723
  Transmission Date: 20191004
  Serious: No
  Sender: FDA-Public Use
  Company Number: US-SHIRE-US201923129

PATIENT
  Age: 74 Year
  Sex: Female
  Weight: 63.95 kg

DRUGS (3)
  1. XIIDRA [Suspect]
     Active Substance: LIFITEGRAST
     Indication: DRY EYE
     Dosage: 1 GTT DROPS, 2X/DAY:BID
     Route: 047
     Dates: start: 20190712, end: 20190712
  2. CLARITINE [Concomitant]
     Active Substance: LORATADINE
     Indication: HYPERSENSITIVITY
  3. XIIDRA [Suspect]
     Active Substance: LIFITEGRAST
     Dosage: UNK
     Route: 047
     Dates: start: 20190614

REACTIONS (9)
  - Lacrimation increased [Recovered/Resolved]
  - Vision blurred [Recovered/Resolved]
  - Inappropriate schedule of product administration [Recovered/Resolved]
  - Product container issue [Unknown]
  - Eye irritation [Recovered/Resolved]
  - Fear [Recovered/Resolved]
  - Headache [Recovered/Resolved]
  - Eye pruritus [Recovered/Resolved]
  - Product storage error [Unknown]

NARRATIVE: CASE EVENT DATE: 20190712
